FAERS Safety Report 16634773 (Version 2)
Quarter: 2019Q4

REPORT INFORMATION
  Report Type: Report from Study
  Country: ES (occurrence: ES)
  Receive Date: 20190726
  Receipt Date: 20191014
  Transmission Date: 20200122
  Serious: Yes (Other)
  Sender: FDA-Public Use
  Company Number: ES-B.I. PHARMACEUTICALS,INC./RIDGEFIELD-2019-12-002349

PATIENT
  Age: 72 Year
  Sex: Female

DRUGS (2)
  1. SPIRIVA [Suspect]
     Active Substance: TIOTROPIUM BROMIDE MONOHYDRATE
     Indication: CHRONIC OBSTRUCTIVE PULMONARY DISEASE
     Dosage: 2.5 UG, QD
     Route: 055
     Dates: start: 20170705, end: 20180109
  2. SPIRIVA [Suspect]
     Active Substance: TIOTROPIUM BROMIDE MONOHYDRATE
     Dosage: 2.5 UG, QD
     Route: 055
     Dates: start: 20190119, end: 20190131

REACTIONS (1)
  - Lower respiratory tract infection [Recovered/Resolved]

NARRATIVE: CASE EVENT DATE: 20190104
